FAERS Safety Report 26095788 (Version 2)
Quarter: 2025Q4

REPORT INFORMATION
  Report Type: Spontaneous
  Country: US (occurrence: US)
  Receive Date: 20251127
  Receipt Date: 20251211
  Transmission Date: 20260117
  Serious: Yes (Hospitalization, Other)
  Sender: SANDOZ
  Company Number: US-SANDOZ-SDZ2025US087698

PATIENT
  Age: 22 Year
  Sex: Female
  Weight: 61.224 kg

DRUGS (6)
  1. DIETARY SUPPLEMENT\HERBALS\MINERALS\VITAMINS [Suspect]
     Active Substance: DIETARY SUPPLEMENT\HERBALS\MINERALS\VITAMINS
     Indication: Product used for unknown indication
     Route: 065
  2. IRON SUCROSE [Suspect]
     Active Substance: IRON SUCROSE
     Indication: Iron deficiency
     Dosage: 300 MG ONE SINGLE DOSE (STRENGTH IRON SUCROSE 20 MG/ML) (IV INFUSION)
     Route: 042
     Dates: start: 20251114, end: 20251114
  3. IRON SUCROSE [Suspect]
     Active Substance: IRON SUCROSE
     Dosage: 300 MG ONE SINGLE DOSE
     Route: 042
     Dates: start: 20251114, end: 20251114
  4. DIPHENHYDRAMINE [Concomitant]
     Active Substance: DIPHENHYDRAMINE
     Indication: Product used for unknown indication
     Dosage: 25 MG
     Route: 042
     Dates: start: 20251114
  5. EPINEPHRINE [Concomitant]
     Active Substance: EPINEPHRINE
     Indication: Product used for unknown indication
     Route: 065
  6. METHYLPREDNISOLONE [Concomitant]
     Active Substance: METHYLPREDNISOLONE
     Indication: Product used for unknown indication
     Dosage: 37.5 MG
     Route: 042
     Dates: start: 20251114

REACTIONS (7)
  - Burning sensation [Recovering/Resolving]
  - Flushing [Recovered/Resolved]
  - Hypotension [Recovered/Resolved]
  - Nausea [Recovered/Resolved]
  - Abdominal pain [Recovered/Resolved]
  - Pruritus [Recovering/Resolving]
  - Exposure during pregnancy [Unknown]

NARRATIVE: CASE EVENT DATE: 20250101
